FAERS Safety Report 7202460-X (Version None)
Quarter: 2010Q4

REPORT INFORMATION
  Report Type: 
  Country: None (occurrence: None)
  Receive Date: 20101229
  Receipt Date: 20101221
  Transmission Date: 20110411
  Serious: Yes (Death, Life-Threatening, Hospitalization)
  Sender: FDA-Public Use
  Company Number: B0689539A

PATIENT
  Sex: Male

DRUGS (4)
  1. ROPINIROLE HYDROCHLORIDE [Suspect]
     Indication: RESTLESS LEGS SYNDROME
     Route: 048
     Dates: start: 20060701, end: 20101105
  2. LOXEN [Suspect]
     Indication: PRODUCT USED FOR UNKNOWN INDICATION
     Dosage: 20MG TWICE PER DAY
     Route: 048
     Dates: end: 20101105
  3. NISISCO [Suspect]
     Indication: PRODUCT USED FOR UNKNOWN INDICATION
     Dosage: 160MG PER DAY
     Route: 048
     Dates: end: 20101105
  4. LOXEN LP [Suspect]
     Indication: PRODUCT USED FOR UNKNOWN INDICATION
     Dosage: 50MG SEE DOSAGE TEXT
     Route: 048
     Dates: start: 20101105, end: 20101107

REACTIONS (9)
  - AMNESIA [None]
  - CARDIO-RESPIRATORY ARREST [None]
  - CONFUSIONAL STATE [None]
  - ELECTROCARDIOGRAM REPOLARISATION ABNORMALITY [None]
  - ELECTROENCEPHALOGRAM ABNORMAL [None]
  - HYPOTENSION [None]
  - MALAISE [None]
  - SUDDEN DEATH [None]
  - SYNCOPE [None]
